FAERS Safety Report 6785178-7 (Version None)
Quarter: 2010Q2

REPORT INFORMATION
  Report Type: 
  Country: None (occurrence: None)
  Receive Date: 20100621
  Receipt Date: 20100621
  Transmission Date: 20101027
  Serious: Yes (Hospitalization)
  Sender: FDA-Public Use
  Company Number: None

PATIENT
  Age: 38 Year
  Sex: Female
  Weight: 54.4316 kg

DRUGS (1)
  1. TAMAZEPAM 30MG [Suspect]
     Indication: INSOMNIA
     Dosage: 30MG 1 TIME A DAY PO
     Route: 048
     Dates: start: 20080101, end: 20100317

REACTIONS (3)
  - BRAIN INJURY [None]
  - MALAISE [None]
  - WITHDRAWAL SYNDROME [None]
